FAERS Safety Report 8983932 (Version 1)
Quarter: 2012Q4

REPORT INFORMATION
  Report Type: Spontaneous
  Country: US (occurrence: None)
  Receive Date: 20121218
  Receipt Date: 20121218
  Transmission Date: 20130627
  Serious: No
  Sender: FDA-Public Use
  Company Number: None

PATIENT
  Age: 45 Year
  Sex: Female
  Weight: 76.2 kg

DRUGS (5)
  1. CYMBALTA 60MG ELI LILLY [Suspect]
     Dosage: 60mg 1X per day po
     Route: 048
     Dates: start: 20110601, end: 20111225
  2. CYMBALTA 60MG ELI LILLY [Suspect]
     Dates: start: 20120222, end: 20121208
  3. GABAPENTIN [Concomitant]
  4. WELLBUTRIN [Concomitant]
  5. TRAMADOL [Concomitant]

REACTIONS (1)
  - Drug withdrawal syndrome [None]
